FAERS Safety Report 9892562 (Version 3)
Quarter: 2014Q1

REPORT INFORMATION
  Report Type: Spontaneous
  Country: IT (occurrence: IT)
  Receive Date: 20140212
  Receipt Date: 20140311
  Transmission Date: 20141002
  Serious: Yes (Hospitalization)
  Sender: FDA-Public Use
  Company Number: PHHY2014IT013645

PATIENT
  Age: 78 Year
  Sex: Male

DRUGS (7)
  1. SINTROM [Suspect]
     Indication: ATRIAL FIBRILLATION
     Dosage: 1 DF, AS NEEDED
     Route: 048
     Dates: start: 20120101, end: 20131209
  2. AMOXICILLIN [Interacting]
     Indication: UPPER RESPIRATORY TRACT INFECTION
     Dosage: UNK UKN, DAILY
     Dates: start: 20131203, end: 20131207
  3. SUTENT [Concomitant]
     Dosage: UNK UKN, UNK
     Dates: start: 20120101, end: 20131209
  4. OMNIC [Concomitant]
     Dosage: UNK UKN, UNK
     Dates: start: 20120101, end: 20131209
  5. PARIET [Concomitant]
     Dosage: UNK UKN, UNK
     Dates: start: 20120101, end: 20131209
  6. DELTACORTENE [Concomitant]
     Dosage: UNK UKN, UNK
     Dates: start: 20120101, end: 20131209
  7. TRAMADOL [Concomitant]
     Dosage: UNK UKN, UNK
     Dates: start: 20120101, end: 20131209

REACTIONS (3)
  - Haematemesis [Recovering/Resolving]
  - Hypocoagulable state [Recovering/Resolving]
  - Drug interaction [Recovering/Resolving]
